FAERS Safety Report 23297069 (Version 1)
Quarter: 2023Q4

REPORT INFORMATION
  Report Type: Spontaneous
  Country: CO (occurrence: CO)
  Receive Date: 20231214
  Receipt Date: 20231214
  Transmission Date: 20240109
  Serious: Yes (Death)
  Sender: FDA-Public Use
  Company Number: CO-PFIZER INC-PV202300201984

PATIENT
  Age: 39 Year
  Sex: Female

DRUGS (1)
  1. PALBOCICLIB [Suspect]
     Active Substance: PALBOCICLIB
     Dosage: 125 MG, DAILY, 21 X 7
     Route: 048
     Dates: start: 20190529, end: 20210928

REACTIONS (1)
  - Death [Fatal]

NARRATIVE: CASE EVENT DATE: 20210928
